FAERS Safety Report 20357706 (Version 1)
Quarter: 2022Q1

REPORT INFORMATION
  Report Type: Spontaneous
  Country: US (occurrence: None)
  Receive Date: 20220120
  Receipt Date: 20220120
  Transmission Date: 20220423
  Serious: Yes (Other)
  Sender: FDA-Public Use
  Company Number: None

PATIENT
  Age: 37 Year
  Sex: Female
  Weight: 56.25 kg

DRUGS (2)
  1. .DELTA.8-TETRAHYDROCANNABINOL\HERBALS [Suspect]
     Active Substance: .DELTA.8-TETRAHYDROCANNABINOL\HERBALS
     Indication: Relaxation therapy
     Dosage: OTHER QUANTITY : 3 SQUARES;?
     Route: 048
     Dates: start: 20220115, end: 20220115
  2. DAILY MULTI VITAMIN [Concomitant]

REACTIONS (3)
  - Hallucination [None]
  - Loss of consciousness [None]
  - Wrong dose [None]

NARRATIVE: CASE EVENT DATE: 20220115
